FAERS Safety Report 16233139 (Version 3)
Quarter: 2019Q4

REPORT INFORMATION
  Report Type: Spontaneous
  Country: ES (occurrence: ES)
  Receive Date: 20190424
  Receipt Date: 20191211
  Transmission Date: 20200122
  Serious: Yes (Life-Threatening, Hospitalization, Other)
  Sender: FDA-Public Use
  Company Number: ES-JNJFOC-20190431391

PATIENT
  Age: 42 Year
  Sex: Male

DRUGS (5)
  1. DOLUTEGRAVIR [Concomitant]
     Active Substance: DOLUTEGRAVIR
     Indication: PRODUCT USED FOR UNKNOWN INDICATION
  2. HEROIN [Concomitant]
     Active Substance: DIAMORPHINE
     Indication: DRUG ABUSE
     Route: 042
  3. SYMTUZA [Suspect]
     Active Substance: COBICISTAT\DARUNAVIR\EMTRICITABINE\TENOFOVIR ALAFENAMIDE
     Indication: HIV INFECTION
     Route: 048
     Dates: start: 20181207, end: 20190205
  4. DESCOVY [Suspect]
     Active Substance: EMTRICITABINE\TENOFOVIR ALAFENAMIDE FUMARATE
     Indication: HIV INFECTION
     Route: 065
     Dates: start: 20190110
  5. COCAINE [Concomitant]
     Active Substance: COCAINE
     Indication: DRUG ABUSE
     Route: 042

REACTIONS (6)
  - Oral candidiasis [Unknown]
  - Immune reconstitution inflammatory syndrome [Recovered/Resolved]
  - Malnutrition [Unknown]
  - Emphysema [Unknown]
  - Cerebral toxoplasmosis [Unknown]
  - Psychopathic personality [Unknown]

NARRATIVE: CASE EVENT DATE: 20190110
